FAERS Safety Report 21761032 (Version 1)
Quarter: 2022Q4

REPORT INFORMATION
  Report Type: Spontaneous
  Country: US (occurrence: None)
  Receive Date: 20221220
  Receipt Date: 20221220
  Transmission Date: 20230112
  Serious: No
  Sender: FDA-Public Use
  Company Number: None

PATIENT
  Age: 68 Year
  Sex: Male
  Weight: 105 kg

DRUGS (1)
  1. LISINOPRIL [Suspect]
     Active Substance: LISINOPRIL
     Indication: Proteinuria
     Dosage: 5 MG EVERY DAY PO
     Route: 048
     Dates: start: 20211104, end: 20220930

REACTIONS (2)
  - Drug hypersensitivity [None]
  - Angioedema [None]

NARRATIVE: CASE EVENT DATE: 20220930
